FAERS Safety Report 9260408 (Version 1)
Quarter: 2013Q2

REPORT INFORMATION
  Report Type: Spontaneous
  Country: US (occurrence: US)
  Receive Date: 20130429
  Receipt Date: 20130429
  Transmission Date: 20140414
  Serious: Yes (Other)
  Sender: FDA-Public Use
  Company Number: US-PFIZER INC-2013131852

PATIENT
  Sex: Female

DRUGS (1)
  1. VENLAFAXINE HCL [Suspect]
     Indication: MAJOR DEPRESSION
     Dosage: 300 MG (TWO 150MG CAPSULES), 1X/DAY
     Route: 048
     Dates: end: 20130420

REACTIONS (3)
  - Hearing impaired [Unknown]
  - Malaise [Unknown]
  - Depression [Unknown]
